FAERS Safety Report 19254533 (Version 3)
Quarter: 2021Q2

REPORT INFORMATION
  Report Type: Spontaneous
  Country: AT (occurrence: AT)
  Receive Date: 20210513
  Receipt Date: 20210602
  Transmission Date: 20210717
  Serious: Yes (Other)
  Sender: FDA-Public Use
  Company Number: AT-AMGEN-AUTSP2021072068

PATIENT
  Age: 72 Year
  Sex: Female
  Weight: 53 kg

DRUGS (21)
  1. PERTUZUMAB. [Suspect]
     Active Substance: PERTUZUMAB
     Indication: BREAST CANCER
     Dosage: 420 MILLIGRAM, Q4WK
     Route: 042
     Dates: start: 20180719, end: 20200227
  2. LETROZOLE. [Suspect]
     Active Substance: LETROZOLE
     Indication: HER2 POSITIVE BREAST CANCER
     Dosage: 2.5 MILLIGRAM, QD
     Route: 048
     Dates: start: 20161021, end: 20200629
  3. DIPRODERM [BETAMETHASONE DIPROPIONATE] [Concomitant]
     Indication: RASH
     Dosage: UNK
     Dates: start: 20180621
  4. NOMEXOR [Concomitant]
     Active Substance: NEBIVOLOL HYDROCHLORIDE
     Dosage: UNK
     Route: 048
     Dates: start: 20170115
  5. TRASTUZUMAB. [Suspect]
     Active Substance: TRASTUZUMAB
     Indication: BREAST CANCER METASTATIC
     Dosage: 354 MILLIGRAM, Q3WK
     Route: 041
     Dates: start: 20160629, end: 20180621
  6. ATORVASTATIN [Concomitant]
     Active Substance: ATORVASTATIN
     Indication: HYPERCHOLESTEROLAEMIA
     Dosage: 20 MILLIGRAM
     Route: 048
     Dates: start: 201701, end: 201701
  7. XGEVA [Suspect]
     Active Substance: DENOSUMAB
     Indication: HER2 POSITIVE BREAST CANCER
     Dosage: 120 MILLIGRAM, Q4WK
     Route: 058
     Dates: start: 20161121, end: 20210126
  8. RIBOCICLIB. [Suspect]
     Active Substance: RIBOCICLIB
     Indication: HER2 POSITIVE BREAST CANCER
     Dosage: 600 MILLIGRAM
     Route: 048
     Dates: start: 20200716, end: 20200814
  9. EUTHYROX [Concomitant]
     Active Substance: LEVOTHYROXINE SODIUM
     Dosage: 75 MILLIGRAM, QD
     Route: 048
     Dates: start: 20210223
  10. TRASTUZUMAB. [Suspect]
     Active Substance: TRASTUZUMAB
     Indication: BREAST CANCER
     Dosage: 372 MILLIGRAM, Q4WK
     Route: 041
     Dates: start: 20180719, end: 20200227
  11. PERTUZUMAB. [Suspect]
     Active Substance: PERTUZUMAB
     Indication: BREAST CANCER METASTATIC
     Dosage: 420 MILLIGRAM, Q3WK
     Route: 042
     Dates: start: 20160629, end: 20180621
  12. DOCETAXEL. [Suspect]
     Active Substance: DOCETAXEL
     Indication: HER2 POSITIVE BREAST CANCER
     Dosage: 75 MILLIGRAM/SQ. METER, Q3WK
     Route: 042
     Dates: start: 20160629, end: 20161013
  13. ADVANTAN [Concomitant]
     Active Substance: METHYLPREDNISOLONE ACEPONATE
     Indication: PALMAR-PLANTAR ERYTHRODYSAESTHESIA SYNDROME
     Dosage: UNK
     Route: 061
     Dates: start: 20201111
  14. THROMBO ASS [Concomitant]
     Active Substance: ASPIRIN
     Dosage: UNK
     Dates: start: 20170115
  15. FULVESTRANT. [Suspect]
     Active Substance: FULVESTRANT
     Indication: HER2 POSITIVE BREAST CANCER
     Dosage: 500 MILLIGRAM, Q4WK
     Route: 058
     Dates: start: 20200716
  16. BETAISODONA [Concomitant]
     Active Substance: POVIDONE-IODINE
     Indication: PARONYCHIA
     Dosage: UNK
     Route: 061
     Dates: start: 20201111
  17. LISINOPRIL. [Concomitant]
     Active Substance: LISINOPRIL
     Dosage: UNK
     Route: 048
     Dates: start: 20170115
  18. TRASTUZUMAB. [Suspect]
     Active Substance: TRASTUZUMAB
     Indication: HER2 POSITIVE BREAST CANCER
     Dosage: 372 MILLIGRAM, Q3WK
     Route: 041
     Dates: start: 20200227, end: 20200320
  19. RIBOCICLIB. [Suspect]
     Active Substance: RIBOCICLIB
     Dosage: 400 MILLIGRAM
     Route: 048
     Dates: start: 20201024
  20. EUTHYROX [Concomitant]
     Active Substance: LEVOTHYROXINE SODIUM
     Dosage: 100 MICROGRAM, QD
     Route: 048
     Dates: start: 20210222
  21. PERTUZUMAB. [Suspect]
     Active Substance: PERTUZUMAB
     Indication: HER2 POSITIVE BREAST CANCER
     Dosage: 420 MILLIGRAM, Q3WK
     Route: 042
     Dates: start: 20200227, end: 20200320

REACTIONS (2)
  - Off label use [Unknown]
  - Osteonecrosis of jaw [Recovering/Resolving]

NARRATIVE: CASE EVENT DATE: 20201215
